FAERS Safety Report 24761304 (Version 1)
Quarter: 2024Q4

REPORT INFORMATION
  Report Type: Spontaneous
  Country: US (occurrence: US)
  Receive Date: 20241220
  Receipt Date: 20241220
  Transmission Date: 20250115
  Serious: No
  Sender: MERCK
  Company Number: US-009507513-2411USA009095

PATIENT
  Age: 40 Year
  Sex: Female

DRUGS (2)
  1. BELSOMRA [Suspect]
     Active Substance: SUVOREXANT
     Dosage: 10MG / NIGHTLY
     Route: 048
     Dates: start: 20241119, end: 20241121
  2. TAMOXIFEN [Concomitant]
     Active Substance: TAMOXIFEN
     Dosage: UNK

REACTIONS (1)
  - Paradoxical drug reaction [Unknown]

NARRATIVE: CASE EVENT DATE: 20241119
